FAERS Safety Report 5892388-X (Version None)
Quarter: 2008Q3

REPORT INFORMATION
  Report Type: 
  Country: None (occurrence: None)
  Receive Date: 20080919
  Receipt Date: 20080919
  Transmission Date: 20090109
  Serious: Yes (Hospitalization)
  Sender: FDA-Public Use
  Company Number: None

PATIENT
  Age: 77 Year
  Sex: Female
  Weight: 70.3075 kg

DRUGS (2)
  1. CUBICIN [Suspect]
     Indication: CELLULITIS
     Dosage: 414 MG -6MG/KG- EVERY M/W/F IV DRIP
     Route: 041
     Dates: start: 20080818, end: 20080903
  2. AMIKACIN [Suspect]
     Indication: CELLULITIS
     Dosage: 600 MG EVERY M/W/F IV DRIP
     Route: 041
     Dates: start: 20080818, end: 20080903

REACTIONS (9)
  - CONJUNCTIVAL HAEMORRHAGE [None]
  - DRUG LEVEL INCREASED [None]
  - DYSPNOEA [None]
  - OEDEMA [None]
  - RENAL IMPAIRMENT [None]
  - SENSATION OF FOREIGN BODY [None]
  - SOMNOLENCE [None]
  - WEIGHT INCREASED [None]
  - WHEELCHAIR USER [None]
